FAERS Safety Report 7490465-3 (Version None)
Quarter: 2011Q2

REPORT INFORMATION
  Report Type: 
  Country: None (occurrence: None)
  Receive Date: 20110519
  Receipt Date: 20110516
  Transmission Date: 20111010
  Serious: Yes (Other)
  Sender: FDA-Public Use
  Company Number: US-BAYER-2011-042316

PATIENT
  Age: 24 Year
  Sex: Female

DRUGS (1)
  1. YAZ [Suspect]
     Dosage: UNK
     Dates: start: 20070901, end: 20090101

REACTIONS (4)
  - CHOLECYSTITIS [None]
  - INJURY [None]
  - CHOLELITHIASIS [None]
  - PAIN [None]
